FAERS Safety Report 4276710-6 (Version None)
Quarter: 2004Q1

REPORT INFORMATION
  Report Type: 
  Country: None (occurrence: None)
  Receive Date: 20040120
  Receipt Date: 20040113
  Transmission Date: 20041129
  Serious: Yes (Other)
  Sender: FDA-Public Use
  Company Number: US-JNJFOC-20040101730

PATIENT
  Age: 73 Year
  Sex: Female
  Weight: 56.6996 kg

DRUGS (5)
  1. ULTRACET [Suspect]
     Indication: NECK PAIN
     Dosage: ORAL
     Route: 048
  2. INSULIN [Concomitant]
  3. GLIPIZIDE [Concomitant]
  4. LIPITOR [Concomitant]
  5. ZOLOFT [Concomitant]

REACTIONS (2)
  - INFLUENZA [None]
  - PNEUMONIA [None]
